FAERS Safety Report 6938234-4 (Version None)
Quarter: 2010Q3

REPORT INFORMATION
  Report Type: 
  Country: None (occurrence: None)
  Receive Date: 20100824
  Receipt Date: 20090820
  Transmission Date: 20110219
  Serious: No
  Sender: FDA-Public Use
  Company Number: A0803316A

PATIENT
  Age: 77 Year
  Sex: Female

DRUGS (4)
  1. MALARONE [Suspect]
     Dosage: 3TAB TWICE PER DAY
     Route: 048
     Dates: start: 20090801
  2. CLARINEX [Concomitant]
  3. SINGULAIR [Concomitant]
  4. CYMBALTA [Concomitant]

REACTIONS (2)
  - FATIGUE [None]
  - SOMNOLENCE [None]
